FAERS Safety Report 7511819-2 (Version None)
Quarter: 2011Q2

REPORT INFORMATION
  Report Type: 
  Country: None (occurrence: None)
  Receive Date: 20110531
  Receipt Date: 20110524
  Transmission Date: 20111010
  Serious: Yes (Other)
  Sender: FDA-Public Use
  Company Number: FR-PFIZER INC-2011112378

PATIENT
  Age: 49 Year
  Sex: Female

DRUGS (7)
  1. NEXIUM [Concomitant]
  2. GLUCOSAMINE SULFATE [Concomitant]
  3. DOMPERIDONE [Concomitant]
  4. STRUCTUM [Concomitant]
  5. ASPIRIN [Concomitant]
  6. AROMASIN [Suspect]
     Dosage: UNK
     Dates: start: 20090101
  7. SOTALOL HCL [Concomitant]

REACTIONS (11)
  - HYPOAESTHESIA [None]
  - DYSPEPSIA [None]
  - BREAST DISCOMFORT [None]
  - HOT FLUSH [None]
  - CHEST PAIN [None]
  - BREAST MASS [None]
  - ABDOMINAL DISTENSION [None]
  - PAIN IN EXTREMITY [None]
  - FATIGUE [None]
  - GAIT DISTURBANCE [None]
  - WEIGHT INCREASED [None]
